FAERS Safety Report 9888325 (Version 1)
Quarter: 2014Q1

REPORT INFORMATION
  Report Type: Spontaneous
  Country: US (occurrence: US)
  Receive Date: 20140211
  Receipt Date: 20140211
  Transmission Date: 20141002
  Serious: No
  Sender: FDA-Public Use
  Company Number: US-PFIZER INC-2014034932

PATIENT
  Sex: Male

DRUGS (2)
  1. EPLERENONE [Suspect]
     Indication: DIURETIC THERAPY
     Dosage: 50 MG, UNK
  2. SPIRONOLACTONE [Suspect]
     Indication: DIURETIC THERAPY
     Dosage: 100 MG, UNK

REACTIONS (3)
  - Breast mass [Unknown]
  - Breast pain [Unknown]
  - Gastric mucosal lesion [Unknown]
